FAERS Safety Report 10265525 (Version 1)
Quarter: 2014Q2

REPORT INFORMATION
  Report Type: Spontaneous
  Country: US (occurrence: US)
  Receive Date: 20140627
  Receipt Date: 20140627
  Transmission Date: 20141212
  Serious: No
  Sender: FDA-Public Use
  Company Number: US-ROXANE LABORATORIES, INC.-2014-RO-01006RO

PATIENT
  Age: 69 Year
  Sex: Female

DRUGS (1)
  1. METHADONE [Suspect]
     Indication: PAIN
     Dosage: 15 MG
     Route: 048
     Dates: start: 20140515, end: 20140523

REACTIONS (2)
  - Vomiting [Recovered/Resolved]
  - Dehydration [Recovered/Resolved]
